FAERS Safety Report 13353318 (Version 1)
Quarter: 2017Q1

REPORT INFORMATION
  Report Type: Spontaneous
  Country: DE (occurrence: DE)
  Receive Date: 20170321
  Receipt Date: 20170321
  Transmission Date: 20170429
  Serious: Yes (Other)
  Sender: FDA-Public Use
  Company Number: DE-ROCHE-1907824

PATIENT
  Sex: Male

DRUGS (7)
  1. MABTHERA [Suspect]
     Active Substance: RITUXIMAB
     Indication: CHRONIC LYMPHOCYTIC LEUKAEMIA
     Dosage: 4 CYCLES TOGETHER WITH BENDAMUSTINE, 2ND LINE
     Route: 065
     Dates: start: 201604, end: 201607
  2. CYCLOPHOSPHAMID [Suspect]
     Active Substance: CYCLOPHOSPHAMIDE
     Indication: CHRONIC LYMPHOCYTIC LEUKAEMIA
     Dosage: 8 CYCLES, ACCORDING TO R-CHOP REGIMEN
     Route: 065
     Dates: start: 20161114
  3. VINCRISTIN [Suspect]
     Active Substance: VINCRISTINE
     Indication: CHRONIC LYMPHOCYTIC LEUKAEMIA
     Dosage: 8 CYCLES, ACCORDING TO R-CHOP REGIMEN
     Route: 065
     Dates: start: 20161114
  4. MABTHERA [Suspect]
     Active Substance: RITUXIMAB
     Dosage: 8 CYCLES, ACCORDING TO R-CHOP REGIMEN
     Route: 065
     Dates: start: 20161114
  5. PREDNISOLON [Suspect]
     Active Substance: PREDNISOLONE
     Indication: CHRONIC LYMPHOCYTIC LEUKAEMIA
     Dosage: 8 CYCLES, ACCORDING TO R-CHOP REGIMEN
     Route: 065
     Dates: start: 20161114
  6. BENDAMUSTINE [Suspect]
     Active Substance: BENDAMUSTINE
     Indication: CHRONIC LYMPHOCYTIC LEUKAEMIA
     Dosage: 4 CYCLES TOGETHER WITH AVASTIN, 2ND LINE
     Route: 065
     Dates: start: 201604, end: 201607
  7. HYDROXYDAUNORUBICIN [Suspect]
     Active Substance: DOXORUBICIN
     Indication: CHRONIC LYMPHOCYTIC LEUKAEMIA
     Dosage: 8 CYCLES, ACCORDING TO R-CHOP REGIMEN
     Route: 065
     Dates: start: 20161114

REACTIONS (6)
  - Oedema [Unknown]
  - Pneumothorax [Unknown]
  - Herpes zoster [Unknown]
  - Pneumonia [Unknown]
  - Infectious pleural effusion [Unknown]
  - Pancytopenia [Unknown]
